FAERS Safety Report 12158605 (Version 1)
Quarter: 2016Q1

REPORT INFORMATION
  Report Type: Spontaneous
  Country: US (occurrence: US)
  Receive Date: 20160308
  Receipt Date: 20160308
  Transmission Date: 20160526
  Serious: No
  Sender: FDA-Public Use
  Company Number: US-JNJFOC-20160202599

PATIENT
  Age: 80 Year
  Sex: Female
  Weight: 61.24 kg

DRUGS (2)
  1. VISINE ORIGINAL REDNESS RELIEF [Suspect]
     Active Substance: TETRAHYDROZOLINE HYDROCHLORIDE
     Indication: OCULAR HYPERAEMIA
     Dosage: 2 TIMES IN EACH EYE
     Route: 047
     Dates: start: 20160201
  2. VISINE ORIGINAL REDNESS RELIEF [Suspect]
     Active Substance: TETRAHYDROZOLINE HYDROCHLORIDE
     Route: 047

REACTIONS (1)
  - Drug ineffective [Unknown]
